FAERS Safety Report 10192492 (Version 1)
Quarter: 2014Q2

REPORT INFORMATION
  Report Type: Report from Study
  Country: US (occurrence: US)
  Receive Date: 20140523
  Receipt Date: 20140523
  Transmission Date: 20141212
  Serious: Yes (Other)
  Sender: FDA-Public Use
  Company Number: US-SA-2014SA053749

PATIENT
  Age: 65 Year
  Sex: Female

DRUGS (1)
  1. AUBAGIO [Suspect]
     Indication: MULTIPLE SCLEROSIS
     Route: 048
     Dates: start: 20140414

REACTIONS (5)
  - Glaucoma [Unknown]
  - Fatigue [Not Recovered/Not Resolved]
  - Abdominal discomfort [Recovered/Resolved]
  - Diarrhoea [Unknown]
  - Urinary tract infection [Unknown]
